FAERS Safety Report 11937250 (Version 1)
Quarter: 2016Q1

REPORT INFORMATION
  Report Type: Spontaneous
  Country: CA (occurrence: CA)
  Receive Date: 20160121
  Receipt Date: 20160121
  Transmission Date: 20160526
  Serious: Yes (Other)
  Sender: FDA-Public Use
  Company Number: CA-TEVA-627381ACC

PATIENT
  Age: 70 Year
  Sex: Female
  Weight: 129 kg

DRUGS (7)
  1. RANITIDINE [Concomitant]
     Active Substance: RANITIDINE\RANITIDINE HYDROCHLORIDE
  2. CARBOPLATIN INJECTION BP [Suspect]
     Active Substance: CARBOPLATIN
     Indication: OVARIAN CANCER
     Dosage: 28.619 MILLIGRAM DAILY;
     Route: 042
  3. BENADRYL [Concomitant]
     Active Substance: DIPHENHYDRAMINE HYDROCHLORIDE
  4. ONDANSETRON [Concomitant]
     Active Substance: ONDANSETRON
  5. DECADRON [Concomitant]
     Active Substance: DEXAMETHASONE
  6. NEXAVAR [Concomitant]
     Active Substance: SORAFENIB
  7. PACLITAXEL INJECTION [Concomitant]
     Active Substance: PACLITAXEL
     Route: 042

REACTIONS (4)
  - Flushing [Unknown]
  - Dyspnoea [Unknown]
  - Nausea [Unknown]
  - Pruritus [Unknown]
